FAERS Safety Report 21626439 (Version 3)
Quarter: 2022Q4

REPORT INFORMATION
  Report Type: Report from Study
  Country: PT (occurrence: PT)
  Receive Date: 20221122
  Receipt Date: 20221218
  Transmission Date: 20230112
  Serious: Yes (Other)
  Sender: FDA-Public Use
  Company Number: PT-ABBVIE-4207942

PATIENT
  Age: 56 Year
  Sex: Male

DRUGS (2)
  1. HUMIRA [Suspect]
     Active Substance: ADALIMUMAB
     Indication: Behcet^s syndrome
     Dosage: FORM STRENGTH 40 MG?TART DATE TEXT: 1 TO 2 YEARS
     Route: 058
     Dates: start: 2020
  2. HUMIRA [Suspect]
     Active Substance: ADALIMUMAB
     Dosage: FORM STRENGTH 40 MILLIGRAM
     Route: 058
     Dates: start: 20170720

REACTIONS (5)
  - Breast discharge [Recovered/Resolved]
  - Blood triglycerides increased [Recovered/Resolved]
  - Pain in extremity [Recovering/Resolving]
  - Off label use [Unknown]
  - Nipple pain [Recovered/Resolved]

NARRATIVE: CASE EVENT DATE: 20170720
